FAERS Safety Report 16431952 (Version 2)
Quarter: 2019Q3

REPORT INFORMATION
  Report Type: Report from Study
  Country: IT (occurrence: IT)
  Receive Date: 20190614
  Receipt Date: 20190701
  Transmission Date: 20191004
  Serious: Yes (Hospitalization, Other)
  Sender: FDA-Public Use
  Company Number: IT-INCYTE CORPORATION-2019IN005753

PATIENT

DRUGS (17)
  1. FLUDARABINA [Concomitant]
     Active Substance: FLUDARABINE PHOSPHATE
     Indication: CHEMOTHERAPY
     Dosage: 30MG/MQ X 5 DAYS
     Route: 065
     Dates: start: 20190126, end: 20190202
  2. CYCLOSPORINE. [Concomitant]
     Active Substance: CYCLOSPORINE
     Indication: PROPHYLAXIS AGAINST GRAFT VERSUS HOST DISEASE
     Dosage: 3 MG/KG, UNK
     Route: 065
     Dates: start: 20190205, end: 20190426
  3. ATG [Concomitant]
     Active Substance: LAPINE T-LYMPHOCYTE IMMUNE GLOBULIN
     Dosage: 2 MG/KG, DAY-2
     Route: 065
  4. BACTRIM [Concomitant]
     Active Substance: SULFAMETHOXAZOLE\TRIMETHOPRIM
     Indication: INFECTION PROPHYLAXIS
  5. ACETAMINOPHEN. [Concomitant]
     Active Substance: ACETAMINOPHEN
     Indication: PRODUCT USED FOR UNKNOWN INDICATION
     Route: 065
  6. MTX [Concomitant]
     Active Substance: METHOTREXATE SODIUM
     Indication: PROPHYLAXIS AGAINST GRAFT VERSUS HOST DISEASE
     Dosage: 10-8 MG/MQ DAYS +1, +3, +6
     Route: 065
     Dates: start: 20190205, end: 20190211
  7. ACICLOVIR [Concomitant]
     Active Substance: ACYCLOVIR
     Indication: INFECTION PROPHYLAXIS
     Dosage: 400 MG, TID
     Route: 065
     Dates: start: 20190204
  8. DIFLUCAN [Concomitant]
     Active Substance: FLUCONAZOLE
     Indication: INFECTION PROPHYLAXIS
     Dosage: UNK
     Route: 065
     Dates: start: 20190204
  9. FUROSEMIDE. [Concomitant]
     Active Substance: FUROSEMIDE
     Indication: PRODUCT USED FOR UNKNOWN INDICATION
     Route: 065
  10. BUSULFANO [Concomitant]
     Active Substance: BUSULFAN
     Indication: CHEMOTHERAPY
     Dosage: 0.8 MG/KG, X 4/DAY FOR 2 DAYS
     Route: 065
     Dates: start: 20190126, end: 20190202
  11. ATG [Concomitant]
     Active Substance: LAPINE T-LYMPHOCYTE IMMUNE GLOBULIN
     Indication: PROPHYLAXIS AGAINST GRAFT VERSUS HOST DISEASE
     Dosage: 0.5 MG/KG, DAY -3
     Route: 065
     Dates: start: 20190126, end: 20190203
  12. BACTRIM [Concomitant]
     Active Substance: SULFAMETHOXAZOLE\TRIMETHOPRIM
     Indication: GASTROINTESTINAL DISORDER PROPHYLAXIS
     Dosage: 100 MG, UNK
     Dates: start: 20190204
  13. ATG [Concomitant]
     Active Substance: LAPINE T-LYMPHOCYTE IMMUNE GLOBULIN
     Dosage: 2.5 MG/KG, DAY-1
     Route: 065
  14. MTX [Concomitant]
     Active Substance: METHOTREXATE SODIUM
     Indication: CHEMOTHERAPY
  15. JAKAVI [Suspect]
     Active Substance: RUXOLITINIB
     Indication: MYELOFIBROSIS
     Dosage: 40 MG/DAY
     Route: 065
     Dates: start: 20180514, end: 20190203
  16. ASA [Concomitant]
     Active Substance: ASPIRIN
     Indication: ESSENTIAL THROMBOCYTHAEMIA
     Dosage: UNK
     Route: 065
     Dates: start: 2003
  17. BUSULFANO [Concomitant]
     Active Substance: BUSULFAN
     Dosage: 0.8 MG/KG, X 2/DAY PER 1 DAY
     Route: 065

REACTIONS (13)
  - Azotaemia [Recovering/Resolving]
  - Fatigue [Unknown]
  - Blood glucose increased [Unknown]
  - Arrhythmia [Recovering/Resolving]
  - Blood sodium decreased [Unknown]
  - Dehydration [Unknown]
  - Nausea [Unknown]
  - Jaundice [Recovered/Resolved]
  - Vomiting [Recovered/Resolved]
  - Asthenia [Recovered/Resolved]
  - Graft versus host disease in liver [Recovering/Resolving]
  - Decreased appetite [Recovered/Resolved]
  - Pruritus [Recovered/Resolved]

NARRATIVE: CASE EVENT DATE: 201902
